FAERS Safety Report 24540264 (Version 1)
Quarter: 2024Q4

REPORT INFORMATION
  Report Type: Report from Study
  Country: BR (occurrence: BR)
  Receive Date: 20241023
  Receipt Date: 20241023
  Transmission Date: 20250115
  Serious: Yes (Other)
  Sender: JOHNSON AND JOHNSON
  Company Number: BR-JNJFOC-20241054219

PATIENT
  Sex: Female
  Weight: 55 kg

DRUGS (1)
  1. INFLIXIMAB [Suspect]
     Active Substance: INFLIXIMAB
     Indication: Crohn^s disease
     Dosage: WILL USE 3 VIALS
     Route: 041
     Dates: start: 2007

REACTIONS (11)
  - Tuberculosis [Unknown]
  - Asthenia [Unknown]
  - Memory impairment [Unknown]
  - Hunger [Unknown]
  - Back pain [Unknown]
  - Weight increased [Unknown]
  - Fatigue [Not Recovered/Not Resolved]
  - Somnolence [Unknown]
  - Abdominal pain [Unknown]
  - Dyspnoea [Unknown]
  - Psoriasis [Unknown]

NARRATIVE: CASE EVENT DATE: 20220101
